FAERS Safety Report 7340661-0 (Version None)
Quarter: 2011Q1

REPORT INFORMATION
  Report Type: 
  Country: None (occurrence: None)
  Receive Date: 20110301
  Receipt Date: 20110216
  Transmission Date: 20110831
  Serious: Yes (Other)
  Sender: FDA-Public Use
  Company Number: 2011MA001485

PATIENT
  Sex: Male

DRUGS (1)
  1. METOCLOPRAMIDE TABLETS USP, 120 MG (PUREPAC) [Suspect]
     Dosage: PO
     Route: 048
     Dates: start: 20030501, end: 20090101

REACTIONS (8)
  - EXTRAPYRAMIDAL DISORDER [None]
  - AKATHISIA [None]
  - DYSTONIA [None]
  - ECONOMIC PROBLEM [None]
  - DYSKINESIA [None]
  - TREMOR [None]
  - TARDIVE DYSKINESIA [None]
  - EMOTIONAL DISORDER [None]
